FAERS Safety Report 25565144 (Version 1)
Quarter: 2025Q3

REPORT INFORMATION
  Report Type: Spontaneous
  Country: CN (occurrence: CN)
  Receive Date: 20250716
  Receipt Date: 20250716
  Transmission Date: 20251021
  Serious: Yes (Death, Other)
  Sender: RANBAXY
  Company Number: CN-SUN PHARMACEUTICAL INDUSTRIES INC-2025R1-516840

PATIENT
  Age: 68 Year
  Sex: Male

DRUGS (2)
  1. ASPIRIN [Suspect]
     Active Substance: ASPIRIN
     Indication: Lacunar infarction
     Dosage: 100 MILLIGRAM, DAILY
     Route: 048
  2. ACEGLUTAMIDE [Suspect]
     Active Substance: ACEGLUTAMIDE
     Indication: Lacunar infarction
     Dosage: 0.5 GRAM, DAILY
     Route: 042

REACTIONS (2)
  - Cardiopulmonary failure [Fatal]
  - Condition aggravated [Fatal]
